FAERS Safety Report 8162698-4 (Version None)
Quarter: 2012Q1

REPORT INFORMATION
  Report Type: 
  Country: None (occurrence: None)
  Receive Date: 20120224
  Receipt Date: 20120220
  Transmission Date: 20120608
  Serious: No
  Sender: FDA-Public Use
  Company Number: US-BAYER-2012-017268

PATIENT
  Age: 71 Year
  Sex: Female
  Weight: 54.422 kg

DRUGS (2)
  1. PREVACID [Concomitant]
  2. NAPROXEN (ALEVE) [Suspect]
     Indication: ANALGESIC THERAPY
     Dosage: 1 U, PRN
     Route: 048
     Dates: start: 20120101, end: 20120218

REACTIONS (1)
  - ABDOMINAL DISCOMFORT [None]
